FAERS Safety Report 7966308-8 (Version None)
Quarter: 2011Q4

REPORT INFORMATION
  Report Type: 
  Country: None (occurrence: None)
  Receive Date: 20111208
  Receipt Date: 20111201
  Transmission Date: 20120403
  Serious: Yes (Hospitalization)
  Sender: FDA-Public Use
  Company Number: US-US-EMD SERONO, INC.-7096898

PATIENT
  Sex: Female

DRUGS (2)
  1. REBIF [Suspect]
     Indication: MULTIPLE SCLEROSIS
     Route: 058
     Dates: start: 20111028
  2. REBIF [Suspect]
     Route: 058
     Dates: start: 20111101

REACTIONS (7)
  - ASTHENIA [None]
  - FEELING ABNORMAL [None]
  - PAIN [None]
  - ARTHRALGIA [None]
  - MULTIPLE SCLEROSIS RELAPSE [None]
  - FALL [None]
  - APHASIA [None]
